FAERS Safety Report 9851032 (Version 1)
Quarter: 2014Q1

REPORT INFORMATION
  Report Type: Spontaneous
  Country: US (occurrence: US)
  Receive Date: 20140128
  Receipt Date: 20140128
  Transmission Date: 20141002
  Serious: No
  Sender: FDA-Public Use
  Company Number: US-DYAX CORP.-2013DX000172

PATIENT
  Sex: Female
  Weight: 59.02 kg

DRUGS (5)
  1. KALBITOR [Suspect]
     Indication: HEREDITARY ANGIOEDEMA
     Route: 058
     Dates: start: 2011, end: 2011
  2. BERINERT [Concomitant]
     Indication: HEREDITARY ANGIOEDEMA
     Route: 065
     Dates: start: 2010
  3. CINRYZE [Concomitant]
     Indication: HEREDITARY ANGIOEDEMA
     Route: 058
     Dates: start: 2009
  4. ADDERALL [Concomitant]
     Indication: ATTENTION DEFICIT/HYPERACTIVITY DISORDER
     Route: 048
  5. FIRAZYR [Concomitant]
     Indication: HEREDITARY ANGIOEDEMA
     Route: 058

REACTIONS (3)
  - Local swelling [Recovered/Resolved]
  - Rash erythematous [Recovered/Resolved]
  - Drug ineffective [Unknown]
